FAERS Safety Report 6617057-X (Version None)
Quarter: 2010Q1

REPORT INFORMATION
  Report Type: 
  Country: None (occurrence: None)
  Receive Date: 20100307
  Receipt Date: 20100222
  Transmission Date: 20100710
  Serious: Yes (Hospitalization, Other)
  Sender: FDA-Public Use
  Company Number: US-TYCO HEALTHCARE/MALLINCKRODT-T200701562

PATIENT

DRUGS (27)
  1. OPTIMARK [Suspect]
     Indication: NUCLEAR MAGNETIC RESONANCE IMAGING BRAIN
     Dosage: UNK, SINGLE
     Dates: start: 20010907, end: 20010907
  2. OMNISCAN [Suspect]
     Indication: NUCLEAR MAGNETIC RESONANCE IMAGING BRAIN
     Dosage: UNK, SINGLE
     Dates: start: 20010910, end: 20010910
  3. OMNISCAN [Suspect]
     Indication: FISTULOGRAM
     Dosage: UNK, SINGLE
     Dates: start: 20010918, end: 20010918
  4. OMNISCAN [Suspect]
     Indication: VENOGRAM
     Dosage: UNK, SINGLE
     Dates: start: 20010927, end: 20010927
  5. OMNISCAN [Suspect]
     Indication: ANGIOGRAM
     Dosage: UNK, SINGLE
     Dates: start: 20011129, end: 20011129
  6. OMNISCAN [Suspect]
     Dosage: UNK, SINGLE
     Dates: start: 20020227, end: 20020227
  7. GADOLINIUM [Suspect]
     Indication: VENOGRAM
     Dosage: UNK, SINGLE
     Dates: start: 19991007, end: 19991007
  8. GADOLINIUM [Suspect]
     Indication: NUCLEAR MAGNETIC RESONANCE IMAGING
     Dosage: UNK, SINGLE
     Dates: start: 20000227, end: 20000227
  9. GADOLINIUM [Suspect]
     Indication: ANGIOPLASTY
     Dosage: UNK, SINGLE
     Dates: start: 20061109, end: 20061109
  10. GADOLINIUM [Suspect]
     Indication: FISTULOGRAM
     Dosage: UNK, SINGLE
     Dates: start: 20090109, end: 20090109
  11. OMNIPAQUE 140 [Suspect]
     Indication: COMPUTERISED TOMOGRAM
     Dosage: UNK, SINGLE
     Dates: start: 20010911, end: 20010911
  12. OMNIPAQUE 140 [Suspect]
     Indication: VENOGRAM
     Dosage: UNK, SINGLE
     Dates: start: 20010912, end: 20010912
  13. OMNIPAQUE 140 [Suspect]
     Indication: FISTULOGRAM
     Dosage: UNK, SINGLE
     Dates: start: 20010926, end: 20010926
  14. RENAGEL                            /01459901/ [Concomitant]
     Indication: MINERAL SUPPLEMENTATION
     Dosage: 1600 MG, QD
  15. SENSIPAR [Concomitant]
     Indication: MINERAL SUPPLEMENTATION
     Dosage: 120 MG, QD
  16. VICODIN [Concomitant]
     Indication: PAIN
     Dosage: UNK, PRN
  17. VITAMINS                           /90003601/ [Concomitant]
     Indication: VITAMIN SUPPLEMENTATION
     Dosage: 1 TAB, QD
  18. IRON [Concomitant]
     Indication: MINERAL SUPPLEMENTATION
  19. HEMOCRIT [Concomitant]
     Indication: PROPHYLAXIS
     Dosage: THREE TIMES WEEKLY
  20. ASPIRIN [Concomitant]
  21. DEXAMETHASONE [Concomitant]
     Dosage: 4 MG Q 6 HOURS
     Route: 042
  22. ALUMINUM HYDROXIDE GEL [Concomitant]
     Dosage: 500 MG WITH MEALS
     Route: 048
  23. NEPHROVITE [Concomitant]
     Dosage: ONE QD
     Route: 048
  24. CHLORAMPHENICOL [Concomitant]
     Dosage: UNK
  25. RESTORIL                           /00393701/ [Concomitant]
     Dosage: UNK, QHS
  26. EPOGEN [Concomitant]
     Dosage: 2500 U
  27. PHOSLO [Concomitant]
     Dosage: 4 TABS Q AC
     Route: 048

REACTIONS (12)
  - ABDOMINAL PAIN [None]
  - BACTERAEMIA [None]
  - DEPRESSION [None]
  - DIARRHOEA [None]
  - EPIDERMAL NECROSIS [None]
  - MELAENA [None]
  - NASAL POLYPS [None]
  - NAUSEA [None]
  - NEPHROGENIC SYSTEMIC FIBROSIS [None]
  - PLEURAL EFFUSION [None]
  - PYREXIA [None]
  - VOMITING [None]
